FAERS Safety Report 16828968 (Version 3)
Quarter: 2019Q3

REPORT INFORMATION
  Report Type: Spontaneous
  Country: BR (occurrence: BR)
  Receive Date: 20190919
  Receipt Date: 20190925
  Transmission Date: 20191005
  Serious: Yes (Other)
  Sender: FDA-Public Use
  Company Number: BR-PFIZER INC-2019401010

PATIENT
  Age: 35 Year
  Sex: Male

DRUGS (1)
  1. GENOTROPIN [Suspect]
     Active Substance: SOMATROPIN
     Dosage: UNK
     Dates: end: 2016

REACTIONS (3)
  - Weight decreased [Unknown]
  - Laurence-Moon-Bardet-Biedl syndrome [Unknown]
  - Weight increased [Unknown]
